FAERS Safety Report 7883407-X (Version None)
Quarter: 2011Q4

REPORT INFORMATION
  Report Type: 
  Country: None (occurrence: None)
  Receive Date: 20111102
  Receipt Date: 20111026
  Transmission Date: 20120403
  Serious: Yes (Other)
  Sender: FDA-Public Use
  Company Number: US-JNJFOC-20111011679

PATIENT
  Sex: Female
  Weight: 136.08 kg

DRUGS (6)
  1. IRON  SUPPLEMENT [Concomitant]
     Indication: MEDICAL DIET
     Route: 048
     Dates: start: 20090101
  2. THYROID TAB [Concomitant]
     Indication: THYROID DISORDER
     Route: 048
  3. VITAMIN D [Concomitant]
     Indication: MEDICAL DIET
     Route: 048
     Dates: start: 20090101
  4. METOPROLOL TARTRATE [Concomitant]
     Indication: HEART RATE INCREASED
     Route: 048
     Dates: start: 20090101
  5. METFORMIN HCL [Concomitant]
     Indication: DIABETES MELLITUS
     Route: 048
  6. STELARA [Suspect]
     Indication: PSORIASIS
     Route: 058
     Dates: start: 20110801

REACTIONS (3)
  - THYROID DISORDER [None]
  - DIABETES MELLITUS [None]
  - BACK PAIN [None]
